FAERS Safety Report 13536336 (Version 1)
Quarter: 2017Q2

REPORT INFORMATION
  Report Type: Spontaneous
  Country: US (occurrence: US)
  Receive Date: 20170511
  Receipt Date: 20170511
  Transmission Date: 20170830
  Serious: Yes (Hospitalization)
  Sender: FDA-Public Use
  Company Number: US-IMPAX LABORATORIES, INC-2017-IPXL-01266

PATIENT
  Age: 38 Year
  Sex: Male

DRUGS (1)
  1. CLONIDINE HYDROCHLORIDE. [Suspect]
     Active Substance: CLONIDINE HYDROCHLORIDE
     Indication: INTENTIONAL OVERDOSE
     Dosage: UNK
     Route: 065

REACTIONS (8)
  - Hypotension [Unknown]
  - Intentional overdose [Unknown]
  - Bradycardia [Unknown]
  - Metabolic acidosis [Unknown]
  - Miosis [Unknown]
  - Lethargy [Unknown]
  - Bradypnoea [Unknown]
  - Respiratory depression [Unknown]
